FAERS Safety Report 14046545 (Version 1)
Quarter: 2017Q4

REPORT INFORMATION
  Report Type: Spontaneous
  Country: US (occurrence: None)
  Receive Date: 20171005
  Receipt Date: 20171005
  Transmission Date: 20180321
  Serious: Yes (Hospitalization)
  Sender: FDA-Public Use
  Company Number: None

PATIENT
  Age: 50 Year
  Sex: Female
  Weight: 61.7 kg

DRUGS (1)
  1. IPILIMUMAB (BMS-734016; MDX-010 TRANSFECTOMA-DERIVED) [Suspect]
     Active Substance: IPILIMUMAB
     Dates: end: 20170825

REACTIONS (8)
  - Vomiting [None]
  - Hypophysitis [None]
  - Adrenal insufficiency [None]
  - Cortisol decreased [None]
  - Hypopituitarism [None]
  - Hyponatraemia [None]
  - Hypophagia [None]
  - Nausea [None]

NARRATIVE: CASE EVENT DATE: 20170918
